FAERS Safety Report 19242700 (Version 5)
Quarter: 2021Q4

REPORT INFORMATION
  Report Type: Spontaneous
  Country: FR (occurrence: FR)
  Receive Date: 20210511
  Receipt Date: 20211004
  Transmission Date: 20220303
  Serious: Yes (Death, Other)
  Sender: FDA-Public Use
  Company Number: None

PATIENT
  Age: 76 Year
  Sex: Female
  Weight: 57 kg

DRUGS (25)
  1. VALACYCLOVIR HYDROCHLORIDE [Suspect]
     Active Substance: VALACYCLOVIR HYDROCHLORIDE
     Indication: Immunosuppression
     Dosage: 500 MG, QD
     Route: 048
     Dates: start: 20210405, end: 20210406
  2. VALACYCLOVIR HYDROCHLORIDE [Suspect]
     Active Substance: VALACYCLOVIR HYDROCHLORIDE
     Dosage: 500 MG
     Route: 065
  3. CISATRACURIUM [Suspect]
     Active Substance: CISATRACURIUM
     Indication: Sedation
     Dosage: 50 MG, QD
     Route: 042
     Dates: start: 20210405, end: 20210406
  4. FUROSEMIDE [Suspect]
     Active Substance: FUROSEMIDE
     Indication: Acute pulmonary oedema
     Dosage: 500 MG, QD
     Route: 042
     Dates: start: 20210405, end: 20210407
  5. CEFEPIME [Suspect]
     Active Substance: CEFEPIME HYDROCHLORIDE
     Indication: Pneumonia pneumococcal
     Dosage: 4 G, QD
     Route: 042
     Dates: start: 20210331, end: 20210406
  6. BACTRIM [Suspect]
     Active Substance: SULFAMETHOXAZOLE\TRIMETHOPRIM
     Indication: Antibiotic prophylaxis
     Dosage: 1 DF, QD
     Route: 042
     Dates: start: 20210405, end: 20210406
  7. BACTRIM [Suspect]
     Active Substance: SULFAMETHOXAZOLE\TRIMETHOPRIM
     Dosage: 4 G, QD
     Route: 042
     Dates: start: 20210405, end: 20210406
  8. VORICONAZOLE [Suspect]
     Active Substance: VORICONAZOLE
     Indication: Lung disorder
     Dosage: 400 MG, QD
     Route: 042
     Dates: start: 20210403, end: 20210406
  9. DEXAMETHASONE [Suspect]
     Active Substance: DEXAMETHASONE
     Indication: COVID-19
     Dosage: 6 MG, QD
     Route: 014
     Dates: start: 20210403, end: 20210406
  10. MIDAZOLAM [Suspect]
     Active Substance: MIDAZOLAM
     Indication: Sedation
     Dosage: 50 MG, QD
     Route: 042
     Dates: start: 20210405, end: 20210406
  11. MIDAZOLAM [Suspect]
     Active Substance: MIDAZOLAM
     Dosage: 100 MG
     Route: 042
     Dates: start: 20210405
  12. SUFENTANIL [Suspect]
     Active Substance: SUFENTANIL
     Indication: Sedation
     Dosage: 50 ?G, QD
     Route: 042
     Dates: start: 20210405, end: 20210406
  13. SUFENTANIL [Suspect]
     Active Substance: SUFENTANIL
     Dosage: 50 MG, QD
     Route: 042
     Dates: start: 20210405, end: 20210406
  14. HEPARIN SODIUM [Suspect]
     Active Substance: HEPARIN SODIUM
     Indication: Prophylaxis
     Dosage: 2500 IU, QD
     Route: 067
     Dates: start: 20210406, end: 20210415
  15. MEROPENEM [Suspect]
     Active Substance: MEROPENEM
     Indication: Product used for unknown indication
     Dosage: UNK
     Route: 065
     Dates: start: 20210411
  16. AVIBACTAM SODIUM\CEFTAZIDIME [Suspect]
     Active Substance: AVIBACTAM SODIUM\CEFTAZIDIME
     Indication: Lung disorder
     Dosage: 4 G, QD
     Route: 065
     Dates: start: 20210408, end: 20210411
  17. URAPIDIL [Suspect]
     Active Substance: URAPIDIL
     Indication: Hypertension
     Dosage: 250 MG, QD
     Route: 065
     Dates: start: 20210407, end: 20210415
  18. LOVENOX [Suspect]
     Active Substance: ENOXAPARIN SODIUM
     Indication: Product used for unknown indication
     Dosage: UNK
     Route: 065
  19. CRESTOR [Concomitant]
     Active Substance: ROSUVASTATIN CALCIUM
     Indication: Product used for unknown indication
     Dosage: UNK
     Route: 065
  20. KARDEGIC [Concomitant]
     Active Substance: ASPIRIN DL-LYSINE
     Indication: Product used for unknown indication
     Dosage: UNK
     Route: 065
  21. VERAPAMIL HYDROCHLORIDE [Concomitant]
     Active Substance: VERAPAMIL HYDROCHLORIDE
     Indication: Product used for unknown indication
     Dosage: UNK
     Route: 065
  22. PANTOPRAZOLE [Concomitant]
     Active Substance: PANTOPRAZOLE
     Indication: Product used for unknown indication
     Dosage: UNK
     Route: 065
  23. PREDNISONE [Concomitant]
     Active Substance: PREDNISONE
     Indication: Product used for unknown indication
     Dosage: UNK
     Route: 065
  24. CALCIDOSE [Concomitant]
     Indication: Product used for unknown indication
     Dosage: UNK
     Route: 065
  25. RILMENIDINE PHOSPHATE [Concomitant]
     Active Substance: RILMENIDINE PHOSPHATE
     Indication: Product used for unknown indication
     Dosage: UNK
     Route: 065

REACTIONS (6)
  - Toxic encephalopathy [Fatal]
  - Off label use [Fatal]
  - Myoclonus [Unknown]
  - Multiple organ dysfunction syndrome [Unknown]
  - Mixed liver injury [Unknown]
  - Mixed liver injury [Unknown]

NARRATIVE: CASE EVENT DATE: 20210406
